FAERS Safety Report 16820821 (Version 1)
Quarter: 2019Q3

REPORT INFORMATION
  Report Type: Spontaneous
  Country: GB (occurrence: GB)
  Receive Date: 20190918
  Receipt Date: 20190918
  Transmission Date: 20191005
  Serious: Yes (Death, Hospitalization)
  Sender: FDA-Public Use
  Company Number: GB-ROCHE-2412593

PATIENT
  Age: 64 Year
  Sex: Male

DRUGS (2)
  1. TECENTRIQ [Suspect]
     Active Substance: ATEZOLIZUMAB
     Indication: NON-SMALL CELL LUNG CANCER
     Route: 042
     Dates: start: 201805
  2. DOCETAXEL. [Concomitant]
     Active Substance: DOCETAXEL

REACTIONS (5)
  - C-reactive protein abnormal [Unknown]
  - Pyrexia [Unknown]
  - Lethargy [Unknown]
  - Death [Fatal]
  - Dyspnoea [Unknown]
